FAERS Safety Report 6693975-1 (Version None)
Quarter: 2010Q2

REPORT INFORMATION
  Report Type: 
  Country: None (occurrence: None)
  Receive Date: 20100423
  Receipt Date: 20100412
  Transmission Date: 20101027
  Serious: Yes (Life-Threatening, Hospitalization)
  Sender: FDA-Public Use
  Company Number: DE-PFIZER INC-2010012609

PATIENT
  Age: 70 Year
  Sex: Female
  Weight: 70 kg

DRUGS (15)
  1. DOXAZOSIN MESILATE [Suspect]
     Indication: HYPERTENSION
     Dosage: 4 MG, 1X/DAY
     Route: 048
  2. SPIRONOLACTONE [Interacting]
     Dosage: 25 MG, 1X/DAY
     Route: 048
     Dates: end: 20090802
  3. ENALAPRIL MALEATE [Interacting]
     Indication: HYPERTENSION
     Dosage: 10 MG, 1X/DAY
     Route: 048
     Dates: end: 20090802
  4. BISOPROLOL FUMARATE AND HYDROCHLOROTHIAZIDE [Interacting]
     Indication: HYPERTENSION
     Dosage: 1 DF, 1X/DAY
     Route: 048
     Dates: end: 20090802
  5. VENLAFAXINE [Interacting]
     Dosage: 37.5 MG, 2X/DAY
     Route: 048
     Dates: end: 20090803
  6. DICLOFENAC [Interacting]
     Indication: PAIN
     Dosage: 50 MG, 1X/DAY
     Route: 048
     Dates: end: 20090802
  7. ENEAS [Interacting]
     Indication: HYPERTENSION
     Dosage: 1 DF, 1X/DAY
     Route: 048
     Dates: end: 20090802
  8. TORASEMIDE [Interacting]
     Indication: HYPERTENSION
     Dosage: 10 MG, 1X/DAY
     Route: 048
     Dates: end: 20090804
  9. DIGITOXIN [Interacting]
     Dosage: 0.07 MG, 1X/DAY
     Route: 048
  10. METFORMIN [Concomitant]
     Indication: TYPE 2 DIABETES MELLITUS
     Dosage: 1000 MG, 2X/DAY
     Route: 048
     Dates: end: 20090802
  11. ACTRAPID INSULIN NOVO [Concomitant]
     Indication: TYPE 2 DIABETES MELLITUS
     Dosage: 3X/DAY (22IU/18IU/20IU)
     Route: 058
  12. LANTUS [Concomitant]
     Indication: TYPE 2 DIABETES MELLITUS
     Dosage: 64 IU, 1X/DAY
     Route: 058
  13. XALATAN [Concomitant]
     Indication: GLAUCOMA
     Dosage: 1.5 UG, 1X/DAY, INTO EACH EYE
     Route: 057
  14. ACETYLSALICYLIC ACID [Concomitant]
     Indication: ISCHAEMIC HEART DISEASE PROPHYLAXIS
     Dosage: 100 MG, 1X/DAY
     Route: 048
     Dates: end: 20090805
  15. NIASPAN [Concomitant]
     Indication: HYPERLIPIDAEMIA
     Dosage: 1500 MG, 1X/DAY
     Route: 048

REACTIONS (3)
  - BICYTOPENIA [None]
  - DRUG INTERACTION [None]
  - RENAL FAILURE ACUTE [None]
